FAERS Safety Report 17524535 (Version 1)
Quarter: 2020Q1

REPORT INFORMATION
  Report Type: Spontaneous
  Country: NL (occurrence: NL)
  Receive Date: 20200311
  Receipt Date: 20200311
  Transmission Date: 20200409
  Serious: Yes (Other)
  Sender: FDA-Public Use
  Company Number: NL-TEVA-2020-NL-1196317

PATIENT
  Age: 54 Year
  Sex: Female
  Weight: 65 kg

DRUGS (1)
  1. TAMOXIFEN [Suspect]
     Active Substance: TAMOXIFEN
     Indication: BREAST CANCER
     Dosage: 20 MILLIGRAM DAILY; TABLET, 20 MG (MILLIGRAM), ONCE A DAY, 1
     Route: 065
     Dates: start: 201910, end: 20191227

REACTIONS (4)
  - Sinusitis [Recovered/Resolved]
  - Cystitis [Recovered/Resolved]
  - Pulpitis dental [Recovered/Resolved]
  - Iridocyclitis [Recovering/Resolving]

NARRATIVE: CASE EVENT DATE: 20191202
